FAERS Safety Report 7472316-6 (Version None)
Quarter: 2011Q2

REPORT INFORMATION
  Report Type: 
  Country: None (occurrence: None)
  Receive Date: 20110502
  Receipt Date: 20110419
  Transmission Date: 20111010
  Serious: Yes (Hospitalization)
  Sender: FDA-Public Use
  Company Number: 2011MA004636

PATIENT
  Age: 31 Year
  Sex: Male

DRUGS (4)
  1. FEVERALL [Suspect]
     Indication: PRODUCT USED FOR UNKNOWN INDICATION
     Dosage: X1
     Route: 054
     Dates: start: 20110325, end: 20110325
  2. SALICYLATES NOS [Suspect]
     Indication: PRODUCT USED FOR UNKNOWN INDICATION
     Dosage: X1
     Dates: start: 20110325, end: 20110325
  3. CLOZARIL [Suspect]
     Indication: SCHIZOPHRENIA
     Dosage: PO
     Route: 048
     Dates: start: 20031118, end: 20110325
  4. TEMAZEPAM [Suspect]
     Indication: PRODUCT USED FOR UNKNOWN INDICATION
     Dosage: X1
     Dates: start: 20110325, end: 20110325

REACTIONS (3)
  - ALANINE AMINOTRANSFERASE INCREASED [None]
  - MULTIPLE DRUG OVERDOSE [None]
  - LIVER FUNCTION TEST ABNORMAL [None]
